FAERS Safety Report 7534418-5 (Version None)
Quarter: 2011Q2

REPORT INFORMATION
  Report Type: 
  Country: None (occurrence: None)
  Receive Date: 20110608
  Receipt Date: 20110603
  Transmission Date: 20111010
  Serious: Yes (Hospitalization, Other)
  Sender: FDA-Public Use
  Company Number: SG-MERCK-1102USA02564

PATIENT
  Age: 54 Year
  Sex: Female

DRUGS (4)
  1. OMEPRAZOLE [Concomitant]
     Route: 048
     Dates: start: 20101027, end: 20101104
  2. JANUVIA [Suspect]
     Route: 048
     Dates: start: 20101111, end: 20101116
  3. JANUVIA [Suspect]
     Indication: DIABETES MELLITUS
     Route: 048
     Dates: start: 20101014, end: 20101031
  4. LIPITOR [Concomitant]
     Indication: HYPERLIPIDAEMIA
     Route: 048

REACTIONS (6)
  - OEDEMA PERIPHERAL [None]
  - PYREXIA [None]
  - SKIN REACTION [None]
  - CELLULITIS [None]
  - SWELLING [None]
  - RASH [None]
